FAERS Safety Report 6250210-6 (Version None)
Quarter: 2009Q2

REPORT INFORMATION
  Report Type: 
  Country: None (occurrence: None)
  Receive Date: 20090629
  Receipt Date: 20081215
  Transmission Date: 20091009
  Serious: No
  Sender: FDA-Public Use
  Company Number: US-BAUSCH-2008BL005257

PATIENT
  Age: 69 Year
  Sex: Female

DRUGS (4)
  1. OFLOXACIN OPHTHALMIC SOLUTION 0.3% [Suspect]
     Route: 001
     Dates: start: 20081211, end: 20081214
  2. FOSAMAX [Concomitant]
     Indication: DRUG USE FOR UNKNOWN INDICATION
     Route: 048
  3. NEXIUM [Concomitant]
     Indication: GASTROOESOPHAGEAL REFLUX DISEASE
     Route: 048
  4. MONOPRIL [Concomitant]
     Indication: HYPERTENSION
     Route: 048

REACTIONS (3)
  - DRUG INEFFECTIVE FOR UNAPPROVED INDICATION [None]
  - INSTILLATION SITE IRRITATION [None]
  - WRONG DRUG ADMINISTERED [None]
